FAERS Safety Report 8927315 (Version 2)
Quarter: 2013Q2

REPORT INFORMATION
  Report Type: Spontaneous
  Country: US (occurrence: US)
  Receive Date: 20121127
  Receipt Date: 20130614
  Transmission Date: 20140414
  Serious: Yes (Hospitalization)
  Sender: FDA-Public Use
  Company Number: US-UCBSA-071382

PATIENT
  Sex: Male

DRUGS (2)
  1. CIMZIA [Suspect]
     Indication: CROHN^S DISEASE
     Dates: start: 200911
  2. CIMZIA [Suspect]
     Indication: CROHN^S DISEASE
     Dates: end: 201010

REACTIONS (2)
  - Crohn^s disease [Unknown]
  - Product quality issue [Unknown]
